FAERS Safety Report 18799339 (Version 1)
Quarter: 2021Q1

REPORT INFORMATION
  Report Type: Spontaneous
  Country: US (occurrence: US)
  Receive Date: 20210128
  Receipt Date: 20210128
  Transmission Date: 20210419
  Serious: No
  Sender: FDA-Public Use
  Company Number: US-009507513-2101USA009735

PATIENT
  Sex: Female

DRUGS (1)
  1. INTRON A [Suspect]
     Active Substance: INTERFERON ALFA-2B
     Indication: OVARIAN CANCER
     Dosage: STRENGTH: 18MM UNITS/3ML, 300000 UNITS INTRADERMALLY 3 TIMES WEEKLY
     Route: 023

REACTIONS (1)
  - Drug effective for unapproved indication [Unknown]
